APPROVED DRUG PRODUCT: MYCOPHENOLATE MOFETIL
Active Ingredient: MYCOPHENOLATE MOFETIL
Strength: 250MG
Dosage Form/Route: CAPSULE;ORAL
Application: A200197 | Product #001 | TE Code: AB
Applicant: ALKEM LABORATORIES LTD
Approved: Jun 13, 2013 | RLD: No | RS: No | Type: RX